FAERS Safety Report 8596969-4 (Version None)
Quarter: 2012Q3

REPORT INFORMATION
  Report Type: 
  Country: None (occurrence: None)
  Receive Date: 20120815
  Receipt Date: 20120808
  Transmission Date: 20120928
  Serious: No
  Sender: FDA-Public Use
  Company Number: US-BAYER-2012-076450

PATIENT
  Sex: Female

DRUGS (1)
  1. MIRENA [Suspect]
     Dosage: 20 MCG/24HR, CONT
     Route: 015
     Dates: start: 20100601

REACTIONS (8)
  - NAUSEA [None]
  - MIGRAINE [None]
  - DECREASED APPETITE [None]
  - BACK PAIN [None]
  - DYSPNOEA [None]
  - PREGNANCY WITH CONTRACEPTIVE DEVICE [None]
  - DIARRHOEA [None]
  - PYREXIA [None]
